FAERS Safety Report 6239530-9 (Version None)
Quarter: 2009Q2

REPORT INFORMATION
  Report Type: 
  Country: None (occurrence: None)
  Receive Date: 20090622
  Receipt Date: 20090610
  Transmission Date: 20091009
  Serious: Yes (Hospitalization)
  Sender: FDA-Public Use
  Company Number: PHHY2009JP21831

PATIENT
  Age: 9 Year
  Sex: Female

DRUGS (3)
  1. TEGRETOL [Suspect]
     Indication: EPILEPSY
     Dosage: 300 MG DAILY
     Route: 048
     Dates: start: 20070201, end: 20090513
  2. TEGRETOL [Suspect]
     Dosage: 165 MG, BID
     Route: 048
     Dates: start: 20090513, end: 20090602
  3. TEGRETOL [Suspect]
     Dosage: 250 MG DAILY
     Route: 048
     Dates: start: 20090604

REACTIONS (2)
  - ANTICONVULSANT DRUG LEVEL ABOVE THERAPEUTIC [None]
  - LOSS OF CONSCIOUSNESS [None]
